FAERS Safety Report 15329362 (Version 1)
Quarter: 2018Q3

REPORT INFORMATION
  Report Type: Spontaneous
  Country: US (occurrence: US)
  Receive Date: 20180829
  Receipt Date: 20180829
  Transmission Date: 20181010
  Serious: No
  Sender: FDA-Public Use
  Company Number: US-BAYER-2018-162261

PATIENT
  Sex: Male

DRUGS (3)
  1. XANAX [Concomitant]
     Active Substance: ALPRAZOLAM
     Dosage: UNK
     Dates: start: 20180828
  2. XANAX [Concomitant]
     Active Substance: ALPRAZOLAM
     Dosage: UNK, QD
  3. CLARITIN?D NOS [Suspect]
     Active Substance: LORATADINE\PSEUDOEPHEDRINE SULFATE
     Dosage: 1 DF, QD
     Route: 065
     Dates: start: 20180827, end: 20180828

REACTIONS (2)
  - Dysstasia [Unknown]
  - Dysuria [Unknown]
